FAERS Safety Report 11338039 (Version 1)
Quarter: 2015Q3

REPORT INFORMATION
  Report Type: Spontaneous
  Country: US (occurrence: US)
  Receive Date: 20150803
  Receipt Date: 20150803
  Transmission Date: 20151125
  Serious: No
  Sender: FDA-Public Use
  Company Number: US-ELI_LILLY_AND_COMPANY-US201005005890

PATIENT
  Sex: Female

DRUGS (6)
  1. LITHIUM. [Concomitant]
     Active Substance: LITHIUM
  2. WELLBUTRIN [Concomitant]
     Active Substance: BUPROPION HYDROCHLORIDE
  3. VISTARIL [Concomitant]
     Active Substance: HYDROXYZINE PAMOATE
  4. ZYPREXA [Suspect]
     Active Substance: OLANZAPINE
     Indication: BIPOLAR DISORDER
     Dates: end: 20100429
  5. TOPAMAX [Concomitant]
     Active Substance: TOPIRAMATE
  6. TRAZODONE [Concomitant]
     Active Substance: TRAZODONE HYDROCHLORIDE

REACTIONS (2)
  - Blood prolactin increased [Unknown]
  - Amenorrhoea [Recovered/Resolved]
